FAERS Safety Report 18121528 (Version 1)
Quarter: 2020Q3

REPORT INFORMATION
  Report Type: Spontaneous
  Country: US (occurrence: US)
  Receive Date: 20200807
  Receipt Date: 20200807
  Transmission Date: 20201103
  Serious: Yes (Other)
  Sender: FDA-Public Use
  Company Number: US-PFIZER INC-2020300245

PATIENT
  Sex: Male

DRUGS (1)
  1. VIAGRA [Suspect]
     Active Substance: SILDENAFIL CITRATE
     Indication: ERECTILE DYSFUNCTION
     Dosage: 150 MG, AS NEEDED
     Dates: start: 202004

REACTIONS (4)
  - Incorrect dose administered [Unknown]
  - Intentional product misuse [Unknown]
  - Therapeutic product effect incomplete [Unknown]
  - Phimosis [Unknown]

NARRATIVE: CASE EVENT DATE: 202004
